FAERS Safety Report 25233956 (Version 1)
Quarter: 2025Q2

REPORT INFORMATION
  Report Type: Other
  Country: FR (occurrence: FR)
  Receive Date: 20250424
  Receipt Date: 20250424
  Transmission Date: 20250717
  Serious: Yes (Hospitalization)
  Sender: ZYDUS PHARM
  Company Number: None

PATIENT

DRUGS (7)
  1. RISPERIDONE [Suspect]
     Active Substance: RISPERIDONE
     Indication: Wrong patient received product
     Route: 048
     Dates: start: 20250315, end: 20250315
  2. ATARAX [Suspect]
     Active Substance: HYDROXYZINE HYDROCHLORIDE
     Indication: Wrong patient received product
     Route: 048
     Dates: start: 20250315, end: 20250315
  3. TROPATEPINE HYDROCHLORIDE [Suspect]
     Active Substance: TROPATEPINE HYDROCHLORIDE
     Indication: Wrong patient received product
     Route: 048
     Dates: start: 20250315, end: 20250315
  4. LOXAPINE SUCCINATE [Suspect]
     Active Substance: LOXAPINE SUCCINATE
     Indication: Wrong patient received product
     Route: 048
     Dates: start: 20250315, end: 20250315
  5. PRAZEPAM [Suspect]
     Active Substance: PRAZEPAM
     Indication: Wrong patient received product
     Route: 048
     Dates: start: 20250315, end: 20250315
  6. VALIUM [Suspect]
     Active Substance: DIAZEPAM
     Indication: Wrong patient received product
     Route: 048
     Dates: start: 20250315, end: 20250315
  7. QUETIAPINE FUMARATE [Suspect]
     Active Substance: QUETIAPINE FUMARATE
     Indication: Wrong patient received product
     Route: 048
     Dates: start: 20250315, end: 20250315

REACTIONS (3)
  - Hospitalisation [Recovered/Resolved]
  - Somnolence [Recovered/Resolved]
  - Wrong patient received product [Recovered/Resolved]

NARRATIVE: CASE EVENT DATE: 20250315
